FAERS Safety Report 7887036 (Version 6)
Quarter: 2013Q2

REPORT INFORMATION
  Report Type: Spontaneous
  Country: US (occurrence: None)
  Receive Date: 20110315
  Receipt Date: 20130624
  Transmission Date: 20140414
  Serious: Yes (Hospitalization)
  Sender: FDA-Public Use
  Company Number: CIP11000589

PATIENT
  Age: 64 Year
  Sex: Female
  Weight: 55.8 kg

DRUGS (36)
  1. ACTONEL [Suspect]
     Indication: OSTEOPOROSIS
     Route: 048
     Dates: start: 20030303, end: 200510
  2. ACTONEL [Suspect]
     Indication: OSTEOPENIA
     Route: 048
     Dates: start: 20030303, end: 200510
  3. FOSAMAX [Suspect]
     Indication: OSTEOPOROSIS
     Route: 048
     Dates: start: 200510, end: 20070308
  4. FOSAMAX [Suspect]
     Indication: OSTEOPENIA
     Route: 048
     Dates: start: 200510, end: 20070308
  5. FOSAMAX PLUS D [Suspect]
     Indication: OSTEOPOROSIS
     Route: 048
     Dates: start: 20070308, end: 200903
  6. ALLEGRA [Concomitant]
  7. VITAMIN C [Concomitant]
  8. CALCIUM CARBONATE [Concomitant]
  9. BETA CAROTENE (BETACAROTENE) [Concomitant]
  10. VITAMIN E /00110501/ [Concomitant]
  11. GLUCOSAMINE (GLUCOSAMINE) [Concomitant]
  12. BLACK COHOSH (CIMICIFUGA RACEMOSA ROOT) [Concomitant]
  13. ADVIL [Concomitant]
  14. HERBAL PREPARATION [Concomitant]
  15. ADVAIR HFA [Concomitant]
  16. FLONASE [Concomitant]
  17. ALBUTEROL (SALBUTAMOL) [Concomitant]
  18. FLOVENT (FLUTICASONE PROPIONATE) [Concomitant]
  19. TRIAMCINOLONE (TRIAMCINOLONE) [Concomitant]
  20. LACTAID (TILACTASE) [Concomitant]
  21. GINKO BILOBA (GINKGO BILOBA) [Concomitant]
  22. VIOXX (ROFECOXIB) [Concomitant]
  23. NABUMETONE (NABUMETONE) [Concomitant]
  24. PREMARIN VAGINAL (ESTROGENS CONJUGATED) [Concomitant]
  25. FAMOTIDINE (FAMOTIDINE) [Concomitant]
  26. LOVASTATIN (LOVASTATIN) [Concomitant]
  27. OMEPRAZOLE (OMEPRAZOLE) [Concomitant]
  28. SPIRIVA (TIOTROPUM BROMIDE) [Concomitant]
  29. NASAREL /00456601/ (FLUNISOLIDE) [Concomitant]
  30. ASTELIN /00085801/ (DIPROPHYLLINE) [Concomitant]
  31. GUAIFENESIN/CODEINE PHOSPHATE, GUAIFENESIN) [Concomitant]
  32. MIACALCIN (CALCITONIN, SALMON) [Concomitant]
  33. ECHINACEA /01323501/ (ECHINACEA PURPUREA) [Concomitant]
  34. ALENDRONATE [Suspect]
     Route: 048
     Dates: end: 200903
  35. CALCIUM WITH VITAMIN D /00944201/ (CALCIUM CARBONATE, COLECALCIFEROL) [Concomitant]
  36. ALLERGEN EXTRACTS [Concomitant]

REACTIONS (16)
  - Stress fracture [None]
  - Femur fracture [None]
  - Fall [None]
  - Bone pain [None]
  - Arthralgia [None]
  - Pain in extremity [None]
  - Oedema peripheral [None]
  - Low turnover osteopathy [None]
  - Osteogenesis imperfecta [None]
  - Bone disorder [None]
  - Dysstasia [None]
  - Limb asymmetry [None]
  - Anaemia postoperative [None]
  - Fracture delayed union [None]
  - Musculoskeletal pain [None]
  - Fracture displacement [None]
